FAERS Safety Report 16169905 (Version 2)
Quarter: 2019Q2

REPORT INFORMATION
  Report Type: Spontaneous
  Country: FR (occurrence: FR)
  Receive Date: 20190408
  Receipt Date: 20190528
  Transmission Date: 20190711
  Serious: Yes (Other)
  Sender: FDA-Public Use
  Company Number: FR-MYLANLABS-2019M1032571

PATIENT
  Age: 58 Year
  Sex: Male
  Weight: 67 kg

DRUGS (3)
  1. AZATHIOPRINE MYLAN [Suspect]
     Active Substance: AZATHIOPRINE
     Indication: INFLAMMATORY BOWEL DISEASE
     Dosage: 3 DOSAGE FORM, QD
     Route: 048
     Dates: start: 20190208, end: 20190310
  2. VENTOLINE                          /00139501/ [Concomitant]
     Active Substance: ALBUTEROL
     Dosage: UNK
  3. HUMIRA [Concomitant]
     Active Substance: ADALIMUMAB
     Dosage: UNK

REACTIONS (13)
  - Renal pain [Not Recovered/Not Resolved]
  - Eye irritation [Recovered/Resolved]
  - Ocular hyperaemia [Recovered/Resolved]
  - Nasopharyngitis [Unknown]
  - Musculoskeletal pain [Unknown]
  - Optic neuritis [Unknown]
  - Chills [Unknown]
  - Arthralgia [Unknown]
  - Toothache [Unknown]
  - Abdominal pain upper [Unknown]
  - Fatigue [Unknown]
  - Pancreatitis acute [Recovered/Resolved]
  - Inflammation [Unknown]

NARRATIVE: CASE EVENT DATE: 2019
